FAERS Safety Report 8765578 (Version 5)
Quarter: 2012Q4

REPORT INFORMATION
  Report Type: 
  Country: JP (occurrence: JP)
  Receive Date: 20120903
  Receipt Date: 20121231
  Transmission Date: 20130627
  Serious: Yes (Hospitalization)
  Sender: FDA-Public Use
  Company Number: JP-UCBSA-064561

PATIENT
  Age: 47 Year
  Sex: Female

DRUGS (1)
  1. E KEPPRA [Suspect]
     Indication: EPILEPSY
     Route: 048
     Dates: start: 20120708

REACTIONS (2)
  - Hypoglycaemia [Recovering/Resolving]
  - Convulsion [Recovering/Resolving]
